FAERS Safety Report 4928767-4 (Version None)
Quarter: 2006Q1

REPORT INFORMATION
  Report Type: 
  Country: None (occurrence: None)
  Receive Date: 20060227
  Receipt Date: 20060227
  Transmission Date: 20060701
  Serious: Yes (Life-Threatening, Hospitalization)
  Sender: FDA-Public Use
  Company Number: None

PATIENT
  Sex: Male
  Weight: 119.296 kg

DRUGS (2)
  1. EFFEXOR [Suspect]
     Indication: MAJOR DEPRESSION
     Dosage: 75 MG ONCE DAILY PO
     Route: 048
     Dates: start: 20051228, end: 20060112
  2. LUNESTA [Suspect]
     Indication: INSOMNIA
     Dosage: 2 MG ONCE @H PO
     Route: 048
     Dates: start: 20051228, end: 20060112

REACTIONS (3)
  - INSOMNIA [None]
  - RENAL FAILURE ACUTE [None]
  - RHABDOMYOLYSIS [None]
